FAERS Safety Report 20635595 (Version 1)
Quarter: 2022Q1

REPORT INFORMATION
  Report Type: Report from Study
  Country: US (occurrence: US)
  Receive Date: 20220325
  Receipt Date: 20220325
  Transmission Date: 20220424
  Serious: Yes (Hospitalization)
  Sender: FDA-Public Use
  Company Number: US-ABBVIE-22K-163-4329810-00

PATIENT
  Age: 23 Year
  Sex: Female

DRUGS (1)
  1. HUMIRA [Suspect]
     Active Substance: ADALIMUMAB
     Indication: Crohn^s disease
     Route: 058
     Dates: start: 20210604

REACTIONS (10)
  - Fatigue [Unknown]
  - Nasopharyngitis [Recovered/Resolved]
  - Attention deficit hyperactivity disorder [Unknown]
  - Asthenia [Unknown]
  - Insomnia [Recovering/Resolving]
  - Anxiety [Unknown]
  - Fear [Unknown]
  - Depressed mood [Unknown]
  - Stress [Unknown]
  - Fatigue [Unknown]

NARRATIVE: CASE EVENT DATE: 20220101
